FAERS Safety Report 7888943-8 (Version None)
Quarter: 2011Q4

REPORT INFORMATION
  Report Type: 
  Country: None (occurrence: None)
  Receive Date: 20111102
  Receipt Date: 20111102
  Transmission Date: 20120403
  Serious: Yes (Other)
  Sender: FDA-Public Use
  Company Number: None

PATIENT
  Age: 64 Year
  Sex: Female
  Weight: 47.6277 kg

DRUGS (2)
  1. DURAGESIC-100 [Suspect]
     Dosage: TRANSDERMAL PATCH - 1 X 72 HRS VARIOUS XS
     Route: 062
  2. MYLAN FENTANYL SANDOZ [Suspect]
     Dosage: TRANSDERMAL PATCH - 1 X 72 HOURS VARIOUS XS
     Route: 062

REACTIONS (7)
  - INADEQUATE ANALGESIA [None]
  - PALPITATIONS [None]
  - DEPRESSION [None]
  - MIGRAINE [None]
  - PRURITUS [None]
  - TINNITUS [None]
  - RESTLESS LEGS SYNDROME [None]
